FAERS Safety Report 18550240 (Version 1)
Quarter: 2020Q4

REPORT INFORMATION
  Report Type: Spontaneous
  Country: HN (occurrence: HN)
  Receive Date: 20201126
  Receipt Date: 20201126
  Transmission Date: 20210114
  Serious: Yes (Death, Other)
  Sender: FDA-Public Use
  Company Number: NVSC2020HN315853

PATIENT
  Age: 65 Year
  Sex: Male

DRUGS (2)
  1. GLIVEC [Suspect]
     Active Substance: IMATINIB MESYLATE
     Indication: CHRONIC MYELOID LEUKAEMIA
     Dosage: 1 DF, QW
     Route: 065
     Dates: start: 201911, end: 202003
  2. GLIVEC [Suspect]
     Active Substance: IMATINIB MESYLATE
     Dosage: 2 DF, QW
     Route: 065
     Dates: start: 202003

REACTIONS (5)
  - Inappropriate schedule of product administration [Unknown]
  - Therapeutic response decreased [Unknown]
  - Chronic kidney disease [Unknown]
  - COVID-19 [Fatal]
  - Type 2 diabetes mellitus [Unknown]

NARRATIVE: CASE EVENT DATE: 201911
